FAERS Safety Report 16175317 (Version 1)
Quarter: 2019Q2

REPORT INFORMATION
  Report Type: Spontaneous
  Country: US (occurrence: US)
  Receive Date: 20190409
  Receipt Date: 20190409
  Transmission Date: 20190711
  Serious: No
  Sender: FDA-Public Use
  Company Number: US-OPTINOSE US, INC-2019OPT000219

PATIENT
  Age: 56 Year
  Sex: Female

DRUGS (2)
  1. XHANCE [Suspect]
     Active Substance: FLUTICASONE PROPIONATE
     Dosage: 186 MICROGRAM, UNK (1 SPRAY EACH NOSTRIL  EVERY OTHER DAY OR TWO)
     Route: 045
     Dates: start: 2018
  2. XHANCE [Suspect]
     Active Substance: FLUTICASONE PROPIONATE
     Indication: PRODUCT USED FOR UNKNOWN INDICATION
     Dosage: 372 MICROGRAM, QD (2 SPRAYS EACH NOSTRIL QD)
     Route: 045
     Dates: start: 201810, end: 2018

REACTIONS (2)
  - Epistaxis [Recovering/Resolving]
  - Inappropriate schedule of product administration [Unknown]

NARRATIVE: CASE EVENT DATE: 2018
